FAERS Safety Report 7941070-3 (Version None)
Quarter: 2011Q4

REPORT INFORMATION
  Report Type: 
  Country: None (occurrence: None)
  Receive Date: 20111122
  Receipt Date: 20111110
  Transmission Date: 20120403
  Serious: Yes (Hospitalization, Other)
  Sender: FDA-Public Use
  Company Number: JPI-P-014152

PATIENT
  Age: 61 Year
  Sex: Male
  Weight: 178 kg

DRUGS (24)
  1. XYREM [Suspect]
     Indication: NARCOLEPSY
     Dosage: 3;9 GM (1.5; 4.5 GM, 2 IN 1 D), ORAL
     Route: 048
     Dates: start: 20050509, end: 20111023
  2. XYREM [Suspect]
     Indication: NARCOLEPSY
     Dosage: 3;9 GM (1.5; 4.5 GM, 2 IN 1 D), ORAL
     Route: 048
     Dates: start: 20111107, end: 20111108
  3. XYREM [Suspect]
     Indication: NARCOLEPSY
     Dosage: 3;9 GM (1.5; 4.5 GM, 2 IN 1 D), ORAL
     Route: 048
     Dates: start: 20111114
  4. XYREM [Suspect]
     Indication: NARCOLEPSY
     Dosage: 3;9 GM (1.5; 4.5 GM, 2 IN 1 D), ORAL
     Route: 048
     Dates: start: 20050418, end: 20050508
  5. FLUID HYDRATION [Suspect]
     Indication: RENAL FAILURE ACUTE
     Dates: start: 20111001
  6. FLUID HYDRATION [Suspect]
     Indication: HYPERCALCAEMIA
     Dates: start: 20111001
  7. GLUCOSAMINE CHONDROITIN [Concomitant]
  8. AMLODIPINE [Concomitant]
  9. LEVOTHYROXINE SODIUM [Concomitant]
  10. SIMVASTATIN [Concomitant]
  11. NEBIVOLOL HCL [Concomitant]
  12. DICLOFENAC SODIUM [Suspect]
     Indication: PAIN
     Dates: end: 20111024
  13. DICLOFENAC SODIUM [Suspect]
     Indication: OSTEOARTHRITIS
     Dates: end: 20111024
  14. TESTOSTERONE [Concomitant]
  15. ASPIRIN [Concomitant]
  16. CALCIUM [Suspect]
     Indication: PRODUCT USED FOR UNKNOWN INDICATION
     Dosage: 1800 MG
     Dates: end: 20111024
  17. FUROSEMIDE [Suspect]
     Indication: HYPERCALCAEMIA
     Dosage: DOSAGE FORMS, 2 IN 1 D, INTRAVENOUS
     Dates: start: 20111001
  18. FUROSEMIDE [Suspect]
     Indication: RENAL FAILURE ACUTE
     Dosage: DOSAGE FORMS, 2 IN 1 D, INTRAVENOUS
     Dates: start: 20111001
  19. VITAMIN E [Concomitant]
  20. GABAPENTIN [Concomitant]
  21. ARMODAFINIL [Concomitant]
  22. VITAMIN D [Concomitant]
  23. VALSARTAN [Suspect]
     Indication: HYPERTENSION
     Dates: end: 20111024
  24. FLUOXETINE [Concomitant]

REACTIONS (16)
  - SOMNOLENCE [None]
  - MICTURITION URGENCY [None]
  - POLLAKIURIA [None]
  - HYPERCALCAEMIA [None]
  - CONFUSIONAL STATE [None]
  - HYPOTENSION [None]
  - MYELOMA RECURRENCE [None]
  - STEM CELL TRANSPLANT [None]
  - RENAL FAILURE ACUTE [None]
  - CONFABULATION [None]
  - ABASIA [None]
  - BLOOD PRESSURE SYSTOLIC INCREASED [None]
  - FALL [None]
  - WEIGHT DECREASED [None]
  - CARDIAC FAILURE CONGESTIVE [None]
  - NO THERAPEUTIC RESPONSE [None]
